FAERS Safety Report 7584062-9 (Version None)
Quarter: 2011Q2

REPORT INFORMATION
  Report Type: 
  Country: None (occurrence: None)
  Receive Date: 20110531
  Receipt Date: 20100720
  Transmission Date: 20111010
  Serious: Yes (Other)
  Sender: FDA-Public Use
  Company Number: 311680

PATIENT
  Age: 59 Year
  Sex: Female

DRUGS (3)
  1. VAGIFEM [Suspect]
     Indication: PRODUCT USED FOR UNKNOWN INDICATION
     Dosage: 25 MCG, VAGINAL
     Route: 067
  2. VIVELLE-DOT [Concomitant]
  3. PROGESTERONE [Concomitant]

REACTIONS (1)
  - ENDOMETRIAL HYPERPLASIA [None]
